FAERS Safety Report 24202128 (Version 1)
Quarter: 2024Q3

REPORT INFORMATION
  Report Type: Report from Study
  Country: KR (occurrence: KR)
  Receive Date: 20240812
  Receipt Date: 20240812
  Transmission Date: 20241016
  Serious: Yes (Hospitalization)
  Sender: ABBVIE
  Company Number: KR-ABBVIE-5872454

PATIENT
  Age: 62 Year
  Sex: Female

DRUGS (4)
  1. HUMIRA [Suspect]
     Active Substance: ADALIMUMAB
     Indication: Behcet^s syndrome
     Dosage: FORM STRENGTH: 40 MILLIGRAM?ONCE
     Route: 058
     Dates: start: 20191014, end: 20191014
  2. HUMIRA [Suspect]
     Active Substance: ADALIMUMAB
     Dosage: FORM STRENGTH: 40 MILLIGRAM?ONCE
     Route: 058
     Dates: start: 20190930, end: 20190930
  3. HUMIRA [Suspect]
     Active Substance: ADALIMUMAB
     Dosage: FORM STRENGTH: 40 MILLIGRAM
     Route: 058
     Dates: start: 20191028, end: 20240311
  4. HUMIRA [Suspect]
     Active Substance: ADALIMUMAB
     Dosage: FORM STRENGTH: 40 MILLIGRAM
     Route: 058
     Dates: start: 20240312, end: 20240716

REACTIONS (3)
  - Behcet^s syndrome [Unknown]
  - Abdominal pain upper [Recovering/Resolving]
  - Gastroenteritis bacterial [Recovering/Resolving]

NARRATIVE: CASE EVENT DATE: 20240801
